FAERS Safety Report 5984802-6 (Version None)
Quarter: 2008Q4

REPORT INFORMATION
  Report Type: 
  Country: None (occurrence: None)
  Receive Date: 20081202
  Receipt Date: 20081117
  Transmission Date: 20090506
  Serious: Yes (Other)
  Sender: FDA-Public Use
  Company Number: 2008S1020682

PATIENT
  Sex: Male

DRUGS (12)
  1. DIPYRIDAMOLE [Suspect]
     Indication: THROMBOSIS PROPHYLAXIS
     Dosage: 200 MG;TWICE A DAY;
     Dates: start: 20060626
  2. FELODIPINE [Suspect]
     Indication: HYPERTENSION
     Dosage: 5 MG;DAILY;
     Dates: start: 20051222
  3. SIMVASTATIN [Suspect]
     Indication: HYPERCHOLESTEROLAEMIA
     Dosage: 20 MG;DAILY;
     Dates: start: 20060530
  4. CANDESARTAN CILEXETIL [Suspect]
     Indication: HYPERTENSION
     Dosage: 16 MG;DAILY;
     Dates: start: 20080929
  5. IPRATROPIUM BROMIDE [Suspect]
     Indication: ASTHMA
     Dosage: 20 UG;TWICE A DAY;INHALATION
     Route: 055
     Dates: start: 20050124
  6. SERETIDE (SERETIDE 01420901/) (1 DF) [Suspect]
     Indication: ASTHMA
     Dosage: 1 DF;TWICE A DAY;INHALATION
     Route: 055
     Dates: start: 20020901
  7. VENTOLIN [Suspect]
     Indication: ASTHMA
     Dosage: INHALATION
     Route: 055
  8. ASPIRIN [Concomitant]
  9. BECLOMETHASONE DIPROPIONATE [Concomitant]
  10. LORATADINE [Concomitant]
  11. ACETAMINOPHEN [Concomitant]
  12. TIOTROPIUM [Concomitant]

REACTIONS (2)
  - ASTHMA [None]
  - FEELING ABNORMAL [None]
